FAERS Safety Report 4906738-1 (Version None)
Quarter: 2006Q1

REPORT INFORMATION
  Report Type: 
  Country: None (occurrence: None)
  Receive Date: 20060113
  Receipt Date: 20051118
  Transmission Date: 20060701
  Serious: No
  Sender: FDA-Public Use
  Company Number: 2005SP004353

PATIENT
  Age: 74 Year
  Sex: Female

DRUGS (1)
  1. LUNESTA [Suspect]
     Dosage: 3 MG;ORAL
     Route: 048
     Dates: start: 20050101

REACTIONS (8)
  - ANOREXIA [None]
  - ANXIETY [None]
  - CHILLS [None]
  - DIARRHOEA [None]
  - HYPERHIDROSIS [None]
  - MUSCLE SPASMS [None]
  - PRURITUS GENERALISED [None]
  - VOMITING [None]
